FAERS Safety Report 13290379 (Version 1)
Quarter: 2017Q1

REPORT INFORMATION
  Report Type: Spontaneous
  Country: US (occurrence: US)
  Receive Date: 20170303
  Receipt Date: 20170303
  Transmission Date: 20170428
  Serious: Yes (Other)
  Sender: FDA-Public Use
  Company Number: US-ACCORD-048661

PATIENT
  Age: 57 Year
  Sex: Female

DRUGS (1)
  1. CAPECITABINE. [Suspect]
     Active Substance: CAPECITABINE
     Indication: TRIPLE NEGATIVE BREAST CANCER
     Dosage: IN MAY-2016, BEGAN WITH 1500 MG BID WITHIN ONE WEEK, IT WAS INCREASED TO 1650 MG BID FOR 14 DAYS
     Route: 048

REACTIONS (2)
  - Dermatoglyphic anomaly [Unknown]
  - Palmar-plantar erythrodysaesthesia syndrome [Unknown]
